FAERS Safety Report 23549587 (Version 10)
Quarter: 2025Q2

REPORT INFORMATION
  Report Type: Report from Study
  Country: US (occurrence: US)
  Receive Date: 20240221
  Receipt Date: 20250621
  Transmission Date: 20250717
  Serious: Yes (Hospitalization, Other)
  Sender: UCB
  Company Number: US-UCBSA-2023053977

PATIENT
  Age: 0 Year
  Sex: Female
  Weight: 9.524 kg

DRUGS (14)
  1. FINTEPLA [Suspect]
     Active Substance: FENFLURAMINE
     Indication: Epilepsy
     Dosage: 0.9 MILLILITER, 2X/DAY (BID), ORAL/G TUBE
     Route: 048
     Dates: start: 20230926
  2. FINTEPLA [Suspect]
     Active Substance: FENFLURAMINE
     Indication: Lennox-Gastaut syndrome
     Dosage: 0.9 MILLILITER, 2X/DAY (BID), ORAL/G TUBE
     Route: 048
  3. FINTEPLA [Suspect]
     Active Substance: FENFLURAMINE
     Dosage: 0.9 MILLILITER, 2X/DAY (BID), ORAL/G TUBE
     Route: 048
  4. FINTEPLA [Suspect]
     Active Substance: FENFLURAMINE
     Dosage: 0.9 MILLILITER, 2X/DAY (BID), ORAL/G TUBE
     Route: 048
  5. FINTEPLA [Suspect]
     Active Substance: FENFLURAMINE
     Dosage: 1.6 MILLILITER, 2X/DAY (BID)
     Route: 048
     Dates: start: 20240312
  6. FINTEPLA [Suspect]
     Active Substance: FENFLURAMINE
     Dosage: 1.6 MILLILITER, 2X/DAY (BID)
     Route: 048
     Dates: start: 20240829
  7. FINTEPLA [Suspect]
     Active Substance: FENFLURAMINE
  8. FINTEPLA [Suspect]
     Active Substance: FENFLURAMINE
  9. BRIVIACT [Concomitant]
     Active Substance: BRIVARACETAM
     Indication: Seizure
     Dates: start: 20240120
  10. CLOBAZAM [Concomitant]
     Active Substance: CLOBAZAM
     Indication: Seizure
     Dates: start: 2023
  11. VIMPAT [Concomitant]
     Active Substance: LACOSAMIDE
     Indication: Seizure
     Dates: start: 2023
  12. TOPIRAMATE [Concomitant]
     Active Substance: TOPIRAMATE
     Indication: Seizure
  13. LEVETIRACETAM [Concomitant]
     Active Substance: LEVETIRACETAM
     Indication: Seizure
  14. MIDAZOLAM [Concomitant]
     Active Substance: MIDAZOLAM
     Indication: Seizure

REACTIONS (16)
  - Gastroenteritis viral [Recovering/Resolving]
  - Seizure [Recovered/Resolved]
  - Polymicrogyria [Unknown]
  - Gastrostomy [Not Recovered/Not Resolved]
  - Gastrointestinal tube insertion [Recovered/Resolved]
  - Weight increased [Unknown]
  - Blood potassium increased [Unknown]
  - Blood glucose increased [Unknown]
  - Platelet count increased [Unknown]
  - Drug level increased [Unknown]
  - Haematocrit increased [Unknown]
  - Anticonvulsant drug level decreased [Unknown]
  - Haemoglobin increased [Unknown]
  - Carbon dioxide abnormal [Unknown]
  - Drug ineffective [Unknown]
  - Off label use [Unknown]

NARRATIVE: CASE EVENT DATE: 20230816
